FAERS Safety Report 7199506-4 (Version None)
Quarter: 2010Q4

REPORT INFORMATION
  Report Type: 
  Country: None (occurrence: None)
  Receive Date: 20101228
  Receipt Date: 20101215
  Transmission Date: 20110411
  Serious: Yes (Other)
  Sender: FDA-Public Use
  Company Number: PHHY2010DE58141

PATIENT
  Age: 63 Year
  Sex: Female
  Weight: 72 kg

DRUGS (2)
  1. FEMARA [Suspect]
     Indication: BREAST CANCER
     Dosage: 2.5 MG DAILY
     Route: 048
     Dates: start: 20080701, end: 20100701
  2. MISTLETOE [Concomitant]
     Indication: BREAST CANCER
     Dosage: UNK
     Dates: start: 20090701

REACTIONS (2)
  - BREAST OPERATION [None]
  - DRUG INEFFECTIVE [None]
